FAERS Safety Report 7430293-8 (Version None)
Quarter: 2011Q2

REPORT INFORMATION
  Report Type: 
  Country: None (occurrence: None)
  Receive Date: 20110419
  Receipt Date: 20110419
  Transmission Date: 20111010
  Serious: No
  Sender: FDA-Public Use
  Company Number: None

PATIENT
  Age: 72 Year
  Sex: Female

DRUGS (1)
  1. CIPROFLOXACIN [Suspect]
     Dosage: 500 MG BID PO
     Route: 048

REACTIONS (5)
  - GAIT DISTURBANCE [None]
  - TREMOR [None]
  - NAUSEA [None]
  - VOMITING [None]
  - CHILLS [None]
